FAERS Safety Report 4409839-X (Version None)
Quarter: 2004Q3

REPORT INFORMATION
  Report Type: 
  Country: None (occurrence: None)
  Receive Date: 20040726
  Receipt Date: 20040713
  Transmission Date: 20050211
  Serious: Yes (Life-Threatening, Hospitalization)
  Sender: FDA-Public Use
  Company Number: BE-JNJFOC-20040702455

PATIENT
  Age: 48 Year
  Sex: Female
  Weight: 60 kg

DRUGS (7)
  1. INFLIXIMAB (INFLIXIMAB, RECOMBINANT) [Suspect]
     Indication: CROHN'S DISEASE
     Dosage: SEE IMAGE
     Route: 042
     Dates: start: 20040513, end: 20040513
  2. INFLIXIMAB (INFLIXIMAB, RECOMBINANT) [Suspect]
     Indication: CROHN'S DISEASE
     Dosage: SEE IMAGE
     Route: 042
     Dates: start: 20040525, end: 20040525
  3. INFLIXIMAB (INFLIXIMAB, RECOMBINANT) [Suspect]
     Indication: CROHN'S DISEASE
     Dosage: SEE IMAGE
     Route: 042
     Dates: start: 20040605, end: 20040605
  4. INFLIXIMAB (INFLIXIMAB, RECOMBINANT) [Suspect]
     Indication: CROHN'S DISEASE
     Dosage: SEE IMAGE
     Route: 042
     Dates: start: 20040708, end: 20040708
  5. PREDNISOLONE [Concomitant]
  6. AZATHIOPRINE [Concomitant]
  7. WARFARIN SODIUM [Concomitant]

REACTIONS (1)
  - LARGE INTESTINE PERFORATION [None]
